FAERS Safety Report 19228228 (Version 1)
Quarter: 2021Q2

REPORT INFORMATION
  Report Type: Spontaneous
  Country: US (occurrence: US)
  Receive Date: 20210507
  Receipt Date: 20210507
  Transmission Date: 20210717
  Serious: No
  Sender: FDA-Public Use
  Company Number: US-SA-2021SA149449

PATIENT

DRUGS (1)
  1. SELSUN [Suspect]
     Active Substance: SELENIUM SULFIDE
     Indication: PRURITUS

REACTIONS (1)
  - Therapeutic response decreased [Unknown]
